FAERS Safety Report 16944588 (Version 1)
Quarter: 2019Q4

REPORT INFORMATION
  Report Type: Spontaneous
  Country: GB (occurrence: GB)
  Receive Date: 20191022
  Receipt Date: 20191022
  Transmission Date: 20200122
  Serious: Yes (Other)
  Sender: FDA-Public Use
  Company Number: NVSC2019GB010239

PATIENT

DRUGS (2)
  1. KISQALI [Suspect]
     Active Substance: RIBOCICLIB
     Indication: INVASIVE LOBULAR BREAST CARCINOMA
     Dosage: 600 MG
     Route: 065
  2. KISQALI [Suspect]
     Active Substance: RIBOCICLIB
     Dosage: 400 MG (AT CYCLE 5)
     Route: 065

REACTIONS (11)
  - Weight decreased [Unknown]
  - Malignant neoplasm progression [Unknown]
  - Oesophagitis [Unknown]
  - Gastritis [Unknown]
  - Dyspepsia [Unknown]
  - Carbohydrate antigen 15-3 increased [Unknown]
  - Metastases to gastrointestinal tract [Unknown]
  - Gastric ulcer [Unknown]
  - Invasive lobular breast carcinoma [Unknown]
  - Haemoglobin increased [Unknown]
  - Abdominal pain [Unknown]
